FAERS Safety Report 10164722 (Version 1)
Quarter: 2014Q2

REPORT INFORMATION
  Report Type: Spontaneous
  Country: US (occurrence: US)
  Receive Date: 20140510
  Receipt Date: 20140510
  Transmission Date: 20141212
  Serious: No
  Sender: FDA-Public Use
  Company Number: US-BRISTOL-MYERS SQUIBB COMPANY-19513613

PATIENT
  Sex: Male

DRUGS (4)
  1. BYETTA [Suspect]
  2. LEVEMIR [Suspect]
     Dosage: FLEXPEN
  3. APIDRA [Suspect]
  4. LANTUS [Suspect]

REACTIONS (1)
  - Blood glucose fluctuation [Unknown]
